FAERS Safety Report 4314537-7 (Version None)
Quarter: 2004Q1

REPORT INFORMATION
  Report Type: 
  Country: None (occurrence: None)
  Receive Date: 20040309
  Receipt Date: 20040223
  Transmission Date: 20041129
  Serious: Yes (Hospitalization)
  Sender: FDA-Public Use
  Company Number: 04P-055-0251079-00

PATIENT
  Age: 61 Year
  Sex: Female

DRUGS (7)
  1. DEPAKENE [Suspect]
     Indication: DEPRESSION
     Dosage: SEE IMAGE
     Route: 048
     Dates: start: 20031017, end: 20030101
  2. DEPAKENE [Suspect]
     Indication: DEPRESSION
     Dosage: SEE IMAGE
     Route: 048
     Dates: start: 20030101, end: 20031213
  3. VENALFAXINE (VENLAFAXINE) [Suspect]
     Indication: DEPRESSION
     Dosage: SEE IMAGE
     Route: 048
     Dates: start: 20031027, end: 20031110
  4. VENALFAXINE (VENLAFAXINE) [Suspect]
     Indication: DEPRESSION
     Dosage: SEE IMAGE
     Route: 048
     Dates: start: 20031110, end: 20031213
  5. MIRTAZAPINE [Concomitant]
  6. ALENDRONATE SODIUM [Concomitant]
  7. OXAZEPAM [Concomitant]

REACTIONS (3)
  - CHOLESTASIS [None]
  - DRUG INTERACTION [None]
  - HEPATIC FAILURE [None]
